FAERS Safety Report 9708894 (Version 2)
Quarter: 2013Q4

REPORT INFORMATION
  Report Type: Report from Study
  Country: FR (occurrence: FR)
  Receive Date: 20131125
  Receipt Date: 20131230
  Transmission Date: 20140711
  Serious: Yes (Death, Life-Threatening, Hospitalization, Other)
  Sender: FDA-Public Use
  Company Number: FR-CELGENEUS-056-21880-13112495

PATIENT
  Age: 79 Year
  Sex: Male
  Weight: 87 kg

DRUGS (5)
  1. REVLIMID [Suspect]
     Indication: PLASMA CELL MYELOMA
     Dosage: 25 MILLIGRAM
     Route: 048
     Dates: start: 20110523, end: 20110612
  2. REVLIMID [Suspect]
     Dosage: 15 MILLIGRAM
     Route: 048
     Dates: start: 20130209, end: 20130219
  3. DEXAMETHASONE [Concomitant]
     Indication: PLASMA CELL MYELOMA
     Route: 065
     Dates: start: 20110523, end: 20110619
  4. DEXAMETHASONE [Concomitant]
     Route: 065
     Dates: start: 200505, end: 200705
  5. SINTROM [Concomitant]
     Indication: THROMBOSIS PROPHYLAXIS
     Route: 065

REACTIONS (3)
  - Supraventricular tachyarrhythmia [Fatal]
  - Hypothyroidism [Not Recovered/Not Resolved]
  - Cardiac failure [Fatal]
